FAERS Safety Report 25103952 (Version 1)
Quarter: 2025Q1

REPORT INFORMATION
  Report Type: Spontaneous
  Country: CN (occurrence: CN)
  Receive Date: 20250321
  Receipt Date: 20250321
  Transmission Date: 20250409
  Serious: Yes (Hospitalization, Other)
  Sender: AMGEN
  Company Number: CN-AMGEN-CHNSP2025053381

PATIENT
  Age: 53 Year
  Sex: Male
  Weight: 68 kg

DRUGS (4)
  1. CARFILZOMIB [Suspect]
     Active Substance: CARFILZOMIB
     Indication: Plasma cell myeloma
     Route: 040
     Dates: start: 20250110, end: 20250220
  2. CARFILZOMIB [Suspect]
     Active Substance: CARFILZOMIB
     Indication: Insomnia
  3. POMALIDOMIDE [Concomitant]
     Active Substance: POMALIDOMIDE
     Dates: start: 20250110
  4. DEXAMETHASONE [Concomitant]
     Active Substance: DEXAMETHASONE
     Dates: start: 20250110

REACTIONS (1)
  - Myelosuppression [Recovering/Resolving]

NARRATIVE: CASE EVENT DATE: 20250224
